FAERS Safety Report 6723753-6 (Version None)
Quarter: 2010Q2

REPORT INFORMATION
  Report Type: 
  Country: None (occurrence: None)
  Receive Date: 20100513
  Receipt Date: 20100305
  Transmission Date: 20101027
  Serious: Yes (Life-Threatening, Hospitalization, Disabling)
  Sender: FDA-Public Use
  Company Number: FR-ROCHE-651514

PATIENT
  Age: 34 Year
  Sex: Female

DRUGS (18)
  1. ENFUVIRTIDE [Suspect]
     Indication: HIV INFECTION
     Route: 065
     Dates: start: 20081114
  2. EMTRICITABINE/TENOFOVIR DISOPROXIL FUMARATE [Suspect]
     Indication: HIV INFECTION
     Route: 048
     Dates: start: 20081114
  3. EFAVIRENZ [Suspect]
     Indication: HIV INFECTION
     Route: 048
     Dates: start: 20081114
  4. EFAVIRENZ [Suspect]
     Dosage: RESIDUAL AT 963 NG/ML
     Route: 048
     Dates: start: 20081222
  5. EFAVIRENZ [Suspect]
     Route: 048
  6. RIFATER [Suspect]
     Indication: TUBERCULOSIS
     Route: 065
     Dates: start: 20081114
  7. MYAMBUTOL [Suspect]
     Indication: TUBERCULOSIS
     Route: 065
     Dates: start: 20081114
  8. PIRILENE [Concomitant]
     Route: 048
     Dates: start: 20090203, end: 20090325
  9. RIFAMPICIN [Concomitant]
     Route: 042
     Dates: start: 20090203, end: 20090325
  10. RIMIFON [Concomitant]
     Route: 048
     Dates: start: 20090203, end: 20090325
  11. BACTRIM [Concomitant]
     Indication: PROPHYLAXIS
     Route: 048
     Dates: start: 20081114
  12. SOLUPRED [Concomitant]
     Dates: start: 20081201
  13. SPECIAFOLDINE [Concomitant]
     Indication: ANAEMIA
     Dates: start: 20081106
  14. RIFADIN [Concomitant]
     Route: 048
  15. SCOPOLAMINE [Concomitant]
  16. AMITRIPTYLINE HCL [Concomitant]
     Route: 048
  17. DURAGESIC-100 [Concomitant]
  18. FORTIMEL [Concomitant]
     Route: 048

REACTIONS (3)
  - IMMUNE RECONSTITUTION SYNDROME [None]
  - IMPAIRED GASTRIC EMPTYING [None]
  - TUBERCULOSIS [None]
